FAERS Safety Report 6769836-6 (Version None)
Quarter: 2010Q2

REPORT INFORMATION
  Report Type: 
  Country: None (occurrence: None)
  Receive Date: 20100615
  Receipt Date: 20100604
  Transmission Date: 20101027
  Serious: Yes (Other)
  Sender: FDA-Public Use
  Company Number: SE-JNJFOC-20100601984

PATIENT
  Age: 42 Year
  Sex: Female

DRUGS (8)
  1. REMICADE [Suspect]
     Indication: PSORIASIS
     Route: 042
  2. REMICADE [Suspect]
     Route: 042
  3. REMICADE [Suspect]
     Indication: PSORIATIC ARTHROPATHY
     Route: 042
  4. REMICADE [Suspect]
     Route: 042
  5. METHOTREXATE [Concomitant]
  6. PREDNISOLONE [Concomitant]
  7. DIKLOFENAK [Concomitant]
  8. OPTINATE SEPTIMUM [Concomitant]

REACTIONS (1)
  - DYSPLASIA [None]
